FAERS Safety Report 5938048-8 (Version None)
Quarter: 2008Q4

REPORT INFORMATION
  Report Type: 
  Country: None (occurrence: None)
  Receive Date: 20081031
  Receipt Date: 20081022
  Transmission Date: 20090506
  Serious: Yes (Other)
  Sender: FDA-Public Use
  Company Number: JP-PFIZER INC-2008085390

PATIENT
  Age: 68 Year
  Sex: Male

DRUGS (5)
  1. EPLERENONE [Suspect]
     Route: 048
  2. NORVASC [Suspect]
     Route: 048
  3. LOSARTAN POTASSIUM AND HYDROCHLOROTHIAZIDE [Concomitant]
     Route: 048
  4. TOLEDOMIN [Concomitant]
     Route: 048
  5. ARTIST [Concomitant]
     Route: 048

REACTIONS (3)
  - CEREBRAL HAEMORRHAGE [None]
  - FAECES DISCOLOURED [None]
  - GASTRIC HAEMORRHAGE [None]
